FAERS Safety Report 18489856 (Version 4)
Quarter: 2021Q3

REPORT INFORMATION
  Report Type: Report from Study
  Country: BR (occurrence: BR)
  Receive Date: 20201111
  Receipt Date: 20210706
  Transmission Date: 20211014
  Serious: Yes (Other)
  Sender: FDA-Public Use
  Company Number: NVSC2019BR074152

PATIENT
  Age: 41 Year
  Sex: Female
  Weight: 75 kg

DRUGS (4)
  1. COSENTYX [Suspect]
     Active Substance: SECUKINUMAB
     Dosage: 300 MG
     Route: 065
     Dates: start: 20201018
  2. COSENTYX [Suspect]
     Active Substance: SECUKINUMAB
     Dosage: 300 MG
     Route: 065
     Dates: start: 20190829, end: 20191106
  3. COSENTYX [Suspect]
     Active Substance: SECUKINUMAB
     Dosage: 300 MG, QMO (BEFORE PANDEMIC)
     Route: 058
     Dates: end: 2019
  4. COSENTYX [Suspect]
     Active Substance: SECUKINUMAB
     Indication: PSORIASIS
     Dosage: 300 MG (AROUND 30 JUL 2019)
     Route: 065

REACTIONS (17)
  - Normal newborn [Unknown]
  - Maternal exposure during pregnancy [Recovered/Resolved]
  - Dry skin [Recovering/Resolving]
  - Skin exfoliation [Recovering/Resolving]
  - Skin plaque [Not Recovered/Not Resolved]
  - Pruritus [Unknown]
  - Skin discolouration [Recovering/Resolving]
  - Malaise [Recovered/Resolved]
  - Influenza [Recovered/Resolved]
  - Cholestasis [Recovered/Resolved]
  - Pain in extremity [Unknown]
  - Decreased immune responsiveness [Recovered/Resolved]
  - Cough [Not Recovered/Not Resolved]
  - Cholelithiasis [Unknown]
  - Hair injury [Recovering/Resolving]
  - Arthralgia [Recovered/Resolved]
  - Psoriasis [Recovering/Resolving]

NARRATIVE: CASE EVENT DATE: 201910
